FAERS Safety Report 5511685-0 (Version None)
Quarter: 2007Q4

REPORT INFORMATION
  Report Type: 
  Country: None (occurrence: None)
  Receive Date: 20071109
  Receipt Date: 20071030
  Transmission Date: 20080405
  Serious: Yes (Other)
  Sender: FDA-Public Use
  Company Number: US-ASTRAZENECA-2007UW02060

PATIENT
  Sex: Male
  Weight: 63.6 kg

DRUGS (3)
  1. SEROQUEL [Suspect]
     Indication: BIPOLAR DISORDER
     Route: 048
     Dates: start: 19990701
  2. SEROQUEL [Suspect]
     Indication: POST-TRAUMATIC STRESS DISORDER
     Route: 048
     Dates: start: 19990701
  3. GEODON [Concomitant]

REACTIONS (6)
  - DIABETIC COMA [None]
  - DIABETIC KETOACIDOSIS [None]
  - GASTROOESOPHAGEAL REFLUX DISEASE [None]
  - HERPES VIRUS INFECTION [None]
  - TINEA INFECTION [None]
  - TYPE 2 DIABETES MELLITUS [None]
